FAERS Safety Report 24689421 (Version 1)
Quarter: 2024Q4

REPORT INFORMATION
  Report Type: Spontaneous
  Country: DE (occurrence: DE)
  Receive Date: 20241203
  Receipt Date: 20241203
  Transmission Date: 20250114
  Serious: Yes (Other)
  Sender: EPIC PHARM
  Company Number: DE-EPICPHARMA-DE-2024EPCLIT01488

PATIENT
  Age: 42 Year
  Sex: Female

DRUGS (6)
  1. CARBOPLATIN [Suspect]
     Active Substance: CARBOPLATIN
     Indication: Hormone receptor positive HER2 negative breast cancer
     Route: 065
  2. DOCETAXEL [Suspect]
     Active Substance: DOCETAXEL
     Indication: Hormone receptor positive HER2 negative breast cancer
     Route: 065
  3. TRASTUZUMAB [Suspect]
     Active Substance: TRASTUZUMAB
     Indication: Hormone receptor positive HER2 negative breast cancer
     Route: 065
  4. TRASTUZUMAB [Suspect]
     Active Substance: TRASTUZUMAB
     Route: 058
  5. PERTUZUMAB [Suspect]
     Active Substance: PERTUZUMAB
     Indication: Hormone receptor positive HER2 negative breast cancer
     Route: 065
  6. PERTUZUMAB [Suspect]
     Active Substance: PERTUZUMAB
     Route: 058

REACTIONS (3)
  - Central vision loss [Recovered/Resolved]
  - Papilloedema [Recovered/Resolved]
  - Product use in unapproved indication [Unknown]
